FAERS Safety Report 6185079-1 (Version None)
Quarter: 2009Q2

REPORT INFORMATION
  Report Type: 
  Country: None (occurrence: None)
  Receive Date: 20090511
  Receipt Date: 20090507
  Transmission Date: 20091009
  Serious: Yes (Hospitalization)
  Sender: FDA-Public Use
  Company Number: IT-JNJFOC-20090401490

PATIENT
  Age: 37 Year
  Sex: Male

DRUGS (2)
  1. PRIXAR [Suspect]
     Indication: PROSTATITIS
     Route: 048
  2. ANANASE [Concomitant]
     Route: 065

REACTIONS (2)
  - DEAFNESS NEUROSENSORY [None]
  - VESTIBULAR NEURONITIS [None]
